FAERS Safety Report 20740458 (Version 4)
Quarter: 2022Q3

REPORT INFORMATION
  Report Type: Spontaneous
  Country: JP (occurrence: JP)
  Receive Date: 20220422
  Receipt Date: 20220803
  Transmission Date: 20221026
  Serious: Yes (Hospitalization)
  Sender: FDA-Public Use
  Company Number: JP-MYOVANT SCIENCES GMBH-2022MYSCI0400353

PATIENT
  Age: 46 Year
  Sex: Female

DRUGS (4)
  1. RELUGOLIX [Suspect]
     Active Substance: RELUGOLIX
     Indication: Uterine leiomyoma
     Dosage: 40 MILLIGRAM, QD
     Route: 048
     Dates: start: 20210707, end: 20210803
  2. RELUGOLIX [Suspect]
     Active Substance: RELUGOLIX
     Indication: Heavy menstrual bleeding
  3. RELUGOLIX [Suspect]
     Active Substance: RELUGOLIX
     Indication: Uterine leiomyoma
  4. INCREMIN [Concomitant]
     Indication: Anaemia
     Dosage: 15 MILLILITER, QD
     Route: 048
     Dates: start: 20210415, end: 20210803

REACTIONS (2)
  - Uterine haemorrhage [Recovering/Resolving]
  - Uterine myoma expulsion [Recovered/Resolved]

NARRATIVE: CASE EVENT DATE: 20210803
